FAERS Safety Report 4299570-6 (Version None)
Quarter: 2004Q1

REPORT INFORMATION
  Report Type: 
  Country: None (occurrence: None)
  Receive Date: 20040217
  Receipt Date: 20040217
  Transmission Date: 20041129
  Serious: Yes (Life-Threatening)
  Sender: FDA-Public Use
  Company Number: None

PATIENT
  Sex: Female
  Weight: 53 kg

DRUGS (8)
  1. PROLEUKIN [Suspect]
     Indication: HODGKIN'S DISEASE
     Dosage: 1.5 X 10(6)U SC QDAY
     Route: 058
     Dates: start: 20040207, end: 20040209
  2. PROLEUKIN [Suspect]
     Indication: NEOPLASM RECURRENCE
     Dosage: 1.5 X 10(6)U SC QDAY
     Route: 058
     Dates: start: 20040207, end: 20040209
  3. INFY [Suspect]
     Indication: HODGKIN'S DISEASE
     Dosage: 38 MCG QOD SC
     Route: 058
     Dates: start: 20040205
  4. INFY [Suspect]
     Indication: NEOPLASM RECURRENCE
     Dosage: 38 MCG QOD SC
     Route: 058
     Dates: start: 20040205
  5. INFY [Suspect]
     Indication: HODGKIN'S DISEASE
     Dosage: 38 MCG QOD SC
     Route: 058
     Dates: start: 20040207
  6. INFY [Suspect]
     Indication: NEOPLASM RECURRENCE
     Dosage: 38 MCG QOD SC
     Route: 058
     Dates: start: 20040207
  7. INFY [Suspect]
     Indication: HODGKIN'S DISEASE
     Dosage: 38 MCG QOD SC
     Route: 058
     Dates: start: 20040209
  8. INFY [Suspect]
     Indication: NEOPLASM RECURRENCE
     Dosage: 38 MCG QOD SC
     Route: 058
     Dates: start: 20040209

REACTIONS (2)
  - CARDIOMEGALY [None]
  - LUNG INFILTRATION [None]
